FAERS Safety Report 16285885 (Version 1)
Quarter: 2019Q2

REPORT INFORMATION
  Report Type: Report from Study
  Country: None (occurrence: US)
  Receive Date: 20190508
  Receipt Date: 20190508
  Transmission Date: 20190711
  Serious: Yes (Other)
  Sender: FDA-Public Use
  Company Number: US-ABBVIE-19K-163-2768795-00

PATIENT
  Age: 55 Year
  Sex: Female

DRUGS (4)
  1. HUMIRA [Suspect]
     Active Substance: ADALIMUMAB
     Indication: RHEUMATOID ARTHRITIS
     Route: 058
  2. HUMIRA [Suspect]
     Active Substance: ADALIMUMAB
     Indication: SYSTEMIC LUPUS ERYTHEMATOSUS
  3. HUMIRA [Suspect]
     Active Substance: ADALIMUMAB
     Indication: SCLERODERMA
  4. HUMIRA [Suspect]
     Active Substance: ADALIMUMAB
     Indication: COELIAC DISEASE

REACTIONS (6)
  - Faeces discoloured [Not Recovered/Not Resolved]
  - Fatigue [Not Recovered/Not Resolved]
  - Blood potassium decreased [Not Recovered/Not Resolved]
  - Haematochezia [Not Recovered/Not Resolved]
  - Influenza [Not Recovered/Not Resolved]
  - Diarrhoea [Unknown]

NARRATIVE: CASE EVENT DATE: 201904
